FAERS Safety Report 20452398 (Version 2)
Quarter: 2022Q1

REPORT INFORMATION
  Report Type: Spontaneous
  Country: US (occurrence: US)
  Receive Date: 20220210
  Receipt Date: 20220211
  Transmission Date: 20220423
  Serious: No
  Sender: FDA-Public Use
  Company Number: US-BEH-2022141906

PATIENT
  Age: 54 Year
  Sex: Female

DRUGS (2)
  1. HIZENTRA [Suspect]
     Active Substance: HUMAN IMMUNOGLOBULIN G
     Indication: Myasthenia gravis
     Dosage: 30 GRAM, BIW
     Route: 058
  2. HIZENTRA [Suspect]
     Active Substance: HUMAN IMMUNOGLOBULIN G
     Dosage: UNK UNK, BIW
     Route: 065
     Dates: start: 20220130

REACTIONS (8)
  - Contusion [Not Recovered/Not Resolved]
  - Skin mass [Recovered/Resolved]
  - Skin mass [Not Recovered/Not Resolved]
  - Administration site bruise [Not Recovered/Not Resolved]
  - Skin induration [Not Recovered/Not Resolved]
  - Skin reaction [Not Recovered/Not Resolved]
  - No adverse event [Unknown]
  - Off label use [Unknown]

NARRATIVE: CASE EVENT DATE: 20220131
